FAERS Safety Report 12795789 (Version 1)
Quarter: 2016Q3

REPORT INFORMATION
  Report Type: Spontaneous
  Country: PT (occurrence: PT)
  Receive Date: 20160929
  Receipt Date: 20160929
  Transmission Date: 20161109
  Serious: Yes (Other)
  Sender: FDA-Public Use
  Company Number: PT-MYLANLABS-2016M1041600

PATIENT

DRUGS (7)
  1. ETHAMBUTOL [Suspect]
     Active Substance: ETHAMBUTOL HYDROCHLORIDE
     Indication: TUBERCULOSIS
     Dosage: UNK
     Route: 065
     Dates: start: 201505, end: 201607
  2. ISONIAZID. [Suspect]
     Active Substance: ISONIAZID
     Dosage: UNK
     Route: 065
     Dates: start: 20160911, end: 201609
  3. ALLOPURINOL. [Suspect]
     Active Substance: ALLOPURINOL
     Indication: HYPERURICAEMIA
     Dosage: UNK
     Route: 065
     Dates: start: 201606, end: 201607
  4. ETHAMBUTOL [Suspect]
     Active Substance: ETHAMBUTOL HYDROCHLORIDE
     Dosage: UNK
     Route: 065
     Dates: start: 20160911, end: 201609
  5. RIFAMPICIN [Suspect]
     Active Substance: RIFAMPIN
     Dosage: UNK
     Route: 065
     Dates: start: 20160903, end: 20160911
  6. RIFAMPICIN [Suspect]
     Active Substance: RIFAMPIN
     Indication: TUBERCULOSIS
     Dosage: UNK
     Route: 065
     Dates: start: 201505, end: 201607
  7. ISONIAZID. [Suspect]
     Active Substance: ISONIAZID
     Indication: TUBERCULOSIS
     Dosage: UNK
     Route: 065
     Dates: start: 201505, end: 201607

REACTIONS (1)
  - Drug reaction with eosinophilia and systemic symptoms [Unknown]

NARRATIVE: CASE EVENT DATE: 201607
